FAERS Safety Report 12613062 (Version 2)
Quarter: 2016Q3

REPORT INFORMATION
  Report Type: Spontaneous
  Country: US (occurrence: US)
  Receive Date: 20160802
  Receipt Date: 20160928
  Transmission Date: 20161109
  Serious: Yes (Hospitalization, Other)
  Sender: FDA-Public Use
  Company Number: US-TEVA-679088USA

PATIENT
  Sex: Male

DRUGS (2)
  1. CASODEX [Suspect]
     Active Substance: BICALUTAMIDE
  2. BICALUTAMIDE. [Suspect]
     Active Substance: BICALUTAMIDE
     Route: 065
     Dates: start: 201601

REACTIONS (9)
  - Blood glucose increased [Unknown]
  - Renal disorder [Unknown]
  - Abasia [Unknown]
  - Weight decreased [Unknown]
  - Pollakiuria [Unknown]
  - Type 2 diabetes mellitus [Unknown]
  - Diabetic coma [Unknown]
  - Incoherent [Unknown]
  - Urinary incontinence [Unknown]

NARRATIVE: CASE EVENT DATE: 20160407
